FAERS Safety Report 4446584-9 (Version None)
Quarter: 2004Q3

REPORT INFORMATION
  Report Type: 
  Country: None (occurrence: None)
  Receive Date: 20040908
  Receipt Date: 20040826
  Transmission Date: 20050211
  Serious: Yes (Other)
  Sender: FDA-Public Use
  Company Number: 2004060005

PATIENT
  Age: 83 Year
  Sex: Female
  Weight: 55.3388 kg

DRUGS (3)
  1. NEURONTIN [Suspect]
     Indication: NEUROPATHY
     Dosage: 1800 MG (600 MG, 3 IN 1 D)
     Dates: start: 20040801, end: 20040801
  2. MIDODRINE HYDROCHLORIDE [Concomitant]
  3. MULTIVITAMIN [Concomitant]

REACTIONS (9)
  - AGGRESSION [None]
  - BALANCE DISORDER [None]
  - COORDINATION ABNORMAL [None]
  - DELIRIUM [None]
  - DIZZINESS [None]
  - DRY MOUTH [None]
  - FATIGUE [None]
  - MOOD ALTERED [None]
  - SOMNOLENCE [None]
